FAERS Safety Report 19997111 (Version 1)
Quarter: 2021Q4

REPORT INFORMATION
  Report Type: Spontaneous
  Country: US (occurrence: US)
  Receive Date: 20211026
  Receipt Date: 20211026
  Transmission Date: 20220303
  Serious: No
  Sender: FDA-Public Use
  Company Number: None

PATIENT
  Age: 15 Year
  Sex: Female
  Weight: 75.75 kg

DRUGS (1)
  1. STELARA [Suspect]
     Active Substance: USTEKINUMAB
     Indication: Psoriasis
     Dosage: INJECT 45MG SUBCUTANEOUSLY AT WEEK 0 AND WEEK 4 AS DIRECTED???OTHER FREQUENCY : UD
     Route: 058
     Dates: start: 201809

REACTIONS (1)
  - COVID-19 [None]
